FAERS Safety Report 5051782-X (Version None)
Quarter: 2006Q3

REPORT INFORMATION
  Report Type: 
  Country: None (occurrence: None)
  Receive Date: 20060714
  Receipt Date: 20060714
  Transmission Date: 20061208
  Serious: Yes (Life-Threatening)
  Sender: FDA-Public Use
  Company Number: None

PATIENT
  Age: 48 Year
  Sex: Female
  Weight: 42 kg

DRUGS (1)
  1. GADILENIUM [Suspect]
     Indication: DIAGNOSTIC PROCEDURE
     Dates: start: 20041016, end: 20041120

REACTIONS (4)
  - ABASIA [None]
  - MUSCLE CONTRACTURE [None]
  - NEPHROGENIC FIBROSING DERMOPATHY [None]
  - SKIN ULCER [None]
